FAERS Safety Report 7811023-4 (Version None)
Quarter: 2011Q4

REPORT INFORMATION
  Report Type: 
  Country: None (occurrence: None)
  Receive Date: 20111013
  Receipt Date: 20111005
  Transmission Date: 20120403
  Serious: Yes (Hospitalization, Other)
  Sender: FDA-Public Use
  Company Number: FR-UCBSA-042805

PATIENT
  Age: 35 Year
  Sex: Male

DRUGS (3)
  1. TRILEPTAL [Concomitant]
     Dosage: FOR A LONG TIME: 1800 MG DAILY
  2. KETOPROFEN [Suspect]
     Indication: GASTROENTERITIS
     Route: 048
     Dates: start: 20101018, end: 20101020
  3. VIMPAT [Suspect]
     Dosage: STARTED SINCE A LONG TIME
     Route: 048

REACTIONS (8)
  - DIPLOPIA [None]
  - GRAND MAL CONVULSION [None]
  - DEHYDRATION [None]
  - VERTIGO [None]
  - FATIGUE [None]
  - RENAL FAILURE ACUTE [None]
  - GASTROENTERITIS [None]
  - OVERDOSE [None]
